FAERS Safety Report 21414748 (Version 5)
Quarter: 2022Q4

REPORT INFORMATION
  Report Type: Report from Study
  Country: ES (occurrence: ES)
  Receive Date: 20221006
  Receipt Date: 20221129
  Transmission Date: 20230113
  Serious: Yes (Hospitalization)
  Sender: FDA-Public Use
  Company Number: ES-ABBVIE-4140553

PATIENT
  Age: 76 Year
  Sex: Male

DRUGS (2)
  1. CARBIDOPA\LEVODOPA [Suspect]
     Active Substance: CARBIDOPA\LEVODOPA
     Indication: Parkinson^s disease
     Route: 050
     Dates: start: 20210301
  2. CARBIDOPA\LEVODOPA [Suspect]
     Active Substance: CARBIDOPA\LEVODOPA

REACTIONS (7)
  - Urinary tract infection [Recovered/Resolved]
  - Freezing phenomenon [Recovered/Resolved]
  - Somnolence [Recovered/Resolved]
  - Movement disorder [Recovered/Resolved]
  - Therapeutic product effect incomplete [Unknown]
  - Stoma site infection [Unknown]
  - Prostate infection [Not Recovered/Not Resolved]

NARRATIVE: CASE EVENT DATE: 20221001
